FAERS Safety Report 13035633 (Version 1)
Quarter: 2016Q4

REPORT INFORMATION
  Report Type: Report from Study
  Country: US (occurrence: US)
  Receive Date: 20161216
  Receipt Date: 20161216
  Transmission Date: 20170207
  Serious: Yes (Death, Hospitalization, Other)
  Sender: FDA-Public Use
  Company Number: US-009507513-1612USA001651

PATIENT
  Sex: Male

DRUGS (1)
  1. EMEND [Suspect]
     Active Substance: APREPITANT
     Dosage: UNK
     Route: 048

REACTIONS (2)
  - Adverse event [Unknown]
  - Death [Fatal]
